FAERS Safety Report 25940132 (Version 2)
Quarter: 2025Q4

REPORT INFORMATION
  Report Type: Report from Study
  Country: US (occurrence: US)
  Receive Date: 20251020
  Receipt Date: 20251027
  Transmission Date: 20260117
  Serious: Yes (Life-Threatening, Other)
  Sender: MYLAN
  Company Number: US-MYLANLABS-2025M1088503

PATIENT
  Age: 51 Year
  Sex: Male

DRUGS (1)
  1. LYRICA [Suspect]
     Active Substance: PREGABALIN
     Indication: Product used for unknown indication
     Dosage: 75 MILLIGRAM, TID (THREE TIMES A DAY)

REACTIONS (8)
  - Near death experience [Unknown]
  - Drug dependence [Unknown]
  - Drug abuse [Unknown]
  - Visual impairment [Unknown]
  - Fatigue [Unknown]
  - Pain [Unknown]
  - Withdrawal syndrome [Unknown]
  - Memory impairment [Unknown]
